FAERS Safety Report 13088047 (Version 1)
Quarter: 2017Q1

REPORT INFORMATION
  Report Type: Spontaneous
  Country: US (occurrence: US)
  Receive Date: 20170104
  Receipt Date: 20170104
  Transmission Date: 20170428
  Serious: No
  Sender: FDA-Public Use
  Company Number: None

PATIENT
  Age: 28 Year
  Sex: Female

DRUGS (2)
  1. OXCARBAZEPINE 300 [Suspect]
     Active Substance: OXCARBAZEPINE
     Indication: AFFECTIVE DISORDER
     Route: 048
     Dates: start: 20160603, end: 20160802
  2. OXCARBAZEPINE 300 [Suspect]
     Active Substance: OXCARBAZEPINE
     Indication: IMPULSE-CONTROL DISORDER
     Route: 048
     Dates: start: 20160603, end: 20160802

REACTIONS (1)
  - Oedema peripheral [None]

NARRATIVE: CASE EVENT DATE: 20160802
